FAERS Safety Report 8340408-5 (Version None)
Quarter: 2012Q2

REPORT INFORMATION
  Report Type: 
  Country: None (occurrence: None)
  Receive Date: 20120507
  Receipt Date: 20120507
  Transmission Date: 20120825
  Serious: No
  Sender: FDA-Public Use
  Company Number: None

PATIENT
  Sex: Female
  Weight: 55.791 kg

DRUGS (1)
  1. MICONAZOLE [Suspect]
     Indication: FUNGAL INFECTION
     Dosage: |STRENGTH: 3 DAY|
     Dates: start: 20120502, end: 20120502

REACTIONS (5)
  - RASH [None]
  - URTICARIA [None]
  - NO THERAPEUTIC RESPONSE [None]
  - PRURITUS [None]
  - BURNING SENSATION [None]
